FAERS Safety Report 9216342 (Version 3)
Quarter: 2013Q3

REPORT INFORMATION
  Report Type: Spontaneous
  Country: JP (occurrence: JP)
  Receive Date: 20130408
  Receipt Date: 20130912
  Transmission Date: 20140515
  Serious: Yes (Death, Hospitalization, Other)
  Sender: FDA-Public Use
  Company Number: PHHY2010JP64024

PATIENT
  Age: 57 Year
  Sex: Male

DRUGS (12)
  1. AFINITOR [Suspect]
     Indication: METASTATIC RENAL CELL CARCINOMA
     Dosage: 10 MG DAILY
     Route: 048
     Dates: start: 20100602, end: 20100811
  2. AFINITOR [Suspect]
     Dosage: 5 MG DAILY
     Route: 048
     Dates: start: 20100913, end: 20101110
  3. SORAFENIB TOSILATE [Concomitant]
     Indication: METASTATIC RENAL CELL CARCINOMA
     Dosage: 800 MG, UNK
     Route: 048
     Dates: start: 201101
  4. AMLODIN [Concomitant]
     Dosage: 5 MG, UNK
     Route: 048
     Dates: start: 20100602
  5. TAKEPRON [Concomitant]
     Dosage: 15 MG, UNK
     Route: 048
     Dates: start: 20100602
  6. MAGMITT [Concomitant]
     Dosage: 1980 MG, UNK
     Route: 048
     Dates: start: 20100602
  7. TRAVELMIN [Concomitant]
     Dosage: 3 DF, UNK
     Route: 048
     Dates: start: 20100602
  8. VOLTAREN - SLOW RELEASE [Concomitant]
     Indication: METASTATIC RENAL CELL CARCINOMA
     Dosage: 50 MG, UNK
     Route: 048
     Dates: start: 20100602
  9. MUCOSTA [Concomitant]
     Indication: PROPHYLAXIS
     Dosage: 300 MG, UNK
     Route: 048
     Dates: start: 20100602
  10. DUROTEP [Concomitant]
     Indication: METASTATIC RENAL CELL CARCINOMA
     Dosage: 25.2 MG, TID
     Dates: start: 20100602
  11. THYRADIN [Concomitant]
     Dosage: 150 UG, UNK
     Route: 048
     Dates: start: 20100602
  12. ZOMETA [Concomitant]
     Indication: METASTATIC RENAL CELL CARCINOMA
     Dosage: 4 MG, UNK
     Route: 042
     Dates: start: 20100602

REACTIONS (9)
  - Metastatic renal cell carcinoma [Fatal]
  - Malignant neoplasm progression [Fatal]
  - Metastases to liver [Fatal]
  - Metastases to central nervous system [Fatal]
  - Blood urea increased [Recovered/Resolved]
  - Pleural effusion [Recovering/Resolving]
  - Blood creatinine increased [Recovered/Resolved]
  - Anaemia [Recovered/Resolved]
  - C-reactive protein increased [Unknown]
